FAERS Safety Report 5776897-X (Version None)
Quarter: 2008Q2

REPORT INFORMATION
  Report Type: 
  Country: None (occurrence: None)
  Receive Date: 20080618
  Receipt Date: 20080612
  Transmission Date: 20081010
  Serious: Yes (Other)
  Sender: FDA-Public Use
  Company Number: A0733508A

PATIENT
  Age: 44 Year
  Sex: Male

DRUGS (7)
  1. AVANDIA [Suspect]
     Indication: DIABETES MELLITUS
     Dosage: 4MG PER DAY
     Route: 048
  2. NIASPAN [Concomitant]
  3. ASPIRIN [Concomitant]
  4. WELLBUTRIN XL [Concomitant]
     Route: 048
  5. AVAPRO [Concomitant]
  6. ZETIA [Concomitant]
  7. GEMFIBROZIL [Concomitant]

REACTIONS (4)
  - CHEST PAIN [None]
  - LEFT ATRIAL DILATATION [None]
  - LEFT VENTRICULAR HYPERTROPHY [None]
  - PULMONARY HYPERTENSION [None]
